FAERS Safety Report 23372852 (Version 1)
Quarter: 2024Q1

REPORT INFORMATION
  Report Type: Spontaneous
  Country: US (occurrence: US)
  Receive Date: 20240105
  Receipt Date: 20240105
  Transmission Date: 20240410
  Serious: No
  Sender: FDA-Public Use
  Company Number: US-PFIZER INC-202300458117

PATIENT
  Age: 76 Year
  Sex: Male

DRUGS (1)
  1. PAXLOVID [Suspect]
     Active Substance: NIRMATRELVIR\RITONAVIR
     Indication: COVID-19 treatment
     Dosage: UNK
     Dates: start: 20231220, end: 20231225

REACTIONS (6)
  - Cough [Not Recovered/Not Resolved]
  - Nasal congestion [Not Recovered/Not Resolved]
  - Headache [Not Recovered/Not Resolved]
  - Pain [Not Recovered/Not Resolved]
  - Throat irritation [Not Recovered/Not Resolved]
  - Body temperature increased [Not Recovered/Not Resolved]

NARRATIVE: CASE EVENT DATE: 20231229
